FAERS Safety Report 24706690 (Version 2)
Quarter: 2024Q4

REPORT INFORMATION
  Report Type: Spontaneous
  Country: US (occurrence: US)
  Receive Date: 20241206
  Receipt Date: 20241227
  Transmission Date: 20250114
  Serious: Yes (Life-Threatening)
  Sender: RUBICON RESEARCH
  Company Number: US-Rubicon research Pvt ltd-2024000079

PATIENT
  Age: 38 Year
  Sex: Female
  Weight: 65 kg

DRUGS (1)
  1. CLONAZEPAM [Suspect]
     Active Substance: CLONAZEPAM
     Indication: Anxiety
     Dosage: (.5MG AS NEEDED BUT ONLY ONCE A DAY)
     Route: 065
     Dates: end: 20241018

REACTIONS (8)
  - Dyspnoea [Unknown]
  - Dizziness [Unknown]
  - Confusional state [Unknown]
  - Psychotic disorder [Unknown]
  - Product substitution issue [Unknown]
  - Off label use [Unknown]
  - Product quality issue [Unknown]
  - Recalled product administered [Unknown]

NARRATIVE: CASE EVENT DATE: 20241011
